FAERS Safety Report 16491164 (Version 1)
Quarter: 2019Q3

REPORT INFORMATION
  Report Type: Spontaneous
  Country: US (occurrence: US)
  Receive Date: 20190627
  Receipt Date: 20190627
  Transmission Date: 20191004
  Serious: No
  Sender: FDA-Public Use
  Company Number: None

PATIENT
  Age: 55 Year
  Sex: Male
  Weight: 108.7 kg

DRUGS (1)
  1. KEYTRUDA [Suspect]
     Active Substance: PEMBROLIZUMAB
     Indication: HODGKIN^S DISEASE REFRACTORY
     Dosage: ?          OTHER FREQUENCY:EVERY 21 DAYS;?
     Route: 041
     Dates: start: 20170607

REACTIONS (5)
  - Aphasia [None]
  - Dyspnoea [None]
  - Swollen tongue [None]
  - Hypoaesthesia oral [None]
  - Swelling face [None]

NARRATIVE: CASE EVENT DATE: 20190621
